FAERS Safety Report 9143511 (Version 1)
Quarter: 2013Q1

REPORT INFORMATION
  Report Type: Spontaneous
  Country: FR (occurrence: FR)
  Receive Date: 20130306
  Receipt Date: 20130306
  Transmission Date: 20140127
  Serious: Yes (Disabling)
  Sender: FDA-Public Use
  Company Number: FR-ASTRAZENECA-2013SE14055

PATIENT
  Age: 35 Year
  Sex: Female

DRUGS (4)
  1. XEROQUEL [Suspect]
     Indication: MAJOR DEPRESSION
     Route: 048
  2. XEROQUEL [Suspect]
     Indication: MAJOR DEPRESSION
     Route: 048
  3. SERESTA [Concomitant]
  4. ZOPICLONE [Concomitant]

REACTIONS (2)
  - Headache [Recovered/Resolved]
  - Muscular weakness [Recovered/Resolved]
